FAERS Safety Report 23342853 (Version 1)
Quarter: 2023Q4

REPORT INFORMATION
  Report Type: Spontaneous
  Country: ES (occurrence: ES)
  Receive Date: 20231227
  Receipt Date: 20231227
  Transmission Date: 20240110
  Serious: Yes (Hospitalization)
  Sender: FDA-Public Use
  Company Number: ES-VIIV HEALTHCARE ULC-ES2023EME178907

PATIENT

DRUGS (3)
  1. VOCABRIA [Suspect]
     Active Substance: CABOTEGRAVIR SODIUM
     Indication: HIV infection
     Dosage: UNK
     Route: 030
  2. VOCABRIA [Suspect]
     Active Substance: CABOTEGRAVIR SODIUM
  3. VOCABRIA [Suspect]
     Active Substance: CABOTEGRAVIR SODIUM

REACTIONS (2)
  - Bronchospasm [Unknown]
  - Oxygen saturation decreased [Unknown]

NARRATIVE: CASE EVENT DATE: 20231214
